FAERS Safety Report 8608604 (Version 4)
Quarter: 2012Q4

REPORT INFORMATION
  Report Type: 
  Country: JP (occurrence: JP)
  Receive Date: 20120611
  Receipt Date: 20121106
  Transmission Date: 20130627
  Serious: Yes (Hospitalization)
  Sender: FDA-Public Use
  Company Number: JP-GLAXOSMITHKLINE-B0806830A

PATIENT
  Age: 76 Year
  Sex: Male
  Weight: 52 kg

DRUGS (3)
  1. VALTREX [Suspect]
     Indication: HERPES ZOSTER
     Dosage: 1000MG Three times per day
     Route: 048
     Dates: start: 20120531, end: 201206
  2. AMLODIN [Concomitant]
     Indication: HYPERTENSION
     Dosage: 2.5MG Per day
     Route: 048
     Dates: start: 201010
  3. FLIVAS [Concomitant]
     Indication: BENIGN PROSTATIC HYPERPLASIA
     Dosage: 75MG Per day
     Route: 048
     Dates: start: 201010

REACTIONS (6)
  - Renal failure acute [Recovered/Resolved]
  - Altered state of consciousness [Recovering/Resolving]
  - Speech disorder [Unknown]
  - Musculoskeletal stiffness [Unknown]
  - Dysarthria [Unknown]
  - Dysuria [Unknown]
